FAERS Safety Report 4699787-2 (Version None)
Quarter: 2005Q2

REPORT INFORMATION
  Report Type: 
  Country: None (occurrence: None)
  Receive Date: 20050623
  Receipt Date: 20050610
  Transmission Date: 20051028
  Serious: Yes (Other)
  Sender: FDA-Public Use
  Company Number: 2005088600

PATIENT
  Age: 64 Year
  Sex: Female
  Weight: 6.3504 kg

DRUGS (3)
  1. DIFLUCAN [Suspect]
     Indication: FUNGAL INFECTION
     Dosage: 150 MG (150 MG, 1 N 1 D), ORAL
     Route: 048
     Dates: end: 20040801
  2. VFEND [Concomitant]
     Indication: FUNGAL INFECTION
     Dosage: 400 MG (200 MG, BID INTERVAL: EVERY DAY), ORAL
     Route: 048
     Dates: start: 20050501, end: 20050501
  3. ESTROGENS (ESTROGENS) [Concomitant]

REACTIONS (9)
  - ANXIETY [None]
  - ASTHENIA [None]
  - CHEST PAIN [None]
  - FATIGUE [None]
  - HYPOTENSION [None]
  - INSOMNIA [None]
  - LETHARGY [None]
  - MOBILITY DECREASED [None]
  - PALPITATIONS [None]
